FAERS Safety Report 4997759-1 (Version None)
Quarter: 2006Q2

REPORT INFORMATION
  Report Type: 
  Country: None (occurrence: None)
  Receive Date: 20060505
  Receipt Date: 20060426
  Transmission Date: 20061013
  Serious: Yes (Hospitalization, Other)
  Sender: FDA-Public Use
  Company Number: 2006056151

PATIENT
  Age: 53 Year
  Sex: Male
  Weight: 59.8748 kg

DRUGS (4)
  1. NEOSPORIN [Suspect]
     Indication: DRY SKIN
     Dosage: 3 TIMES DAILY, TOPICAL
     Route: 061
     Dates: start: 20051016, end: 20051001
  2. HYDROCORTISONE [Concomitant]
  3. PROPRANOLOL [Concomitant]
  4. CETIRIZINE HCL [Concomitant]

REACTIONS (2)
  - APPLICATION SITE IRRITATION [None]
  - DRUG HYPERSENSITIVITY [None]
